FAERS Safety Report 23727563 (Version 1)
Quarter: 2024Q2

REPORT INFORMATION
  Report Type: Spontaneous
  Country: US (occurrence: US)
  Receive Date: 20240410
  Receipt Date: 20240410
  Transmission Date: 20240716
  Serious: Yes (Other)
  Sender: FDA-Public Use
  Company Number: US-BAYER-2024A050118

PATIENT
  Age: 69 Year
  Sex: Female

DRUGS (1)
  1. ASPIRIN [Interacting]
     Active Substance: ASPIRIN

REACTIONS (3)
  - Shock haemorrhagic [None]
  - Gastrointestinal haemorrhage [None]
  - Labelled drug-drug interaction issue [None]
